FAERS Safety Report 8092307-4 (Version None)
Quarter: 2012Q1

REPORT INFORMATION
  Report Type: 
  Country: None (occurrence: None)
  Receive Date: 20120129
  Receipt Date: 20111122
  Transmission Date: 20120608
  Serious: No
  Sender: FDA-Public Use
  Company Number: US-ABBOTT-11P-163-0876946-00

PATIENT
  Age: 66 Year
  Sex: Female

DRUGS (14)
  1. OMEPRAZOLE [Concomitant]
     Indication: GASTRITIS EROSIVE
  2. JANUVIA [Concomitant]
     Indication: GLUCOSE TOLERANCE IMPAIRED
  3. METHOTREXATE [Concomitant]
     Indication: FIBROMYALGIA
  4. SULFAZINE [Concomitant]
     Indication: FIBROMYALGIA
  5. HUMIRA [Suspect]
     Indication: PSORIATIC ARTHROPATHY
     Dates: start: 20110801
  6. AMLODIPINE [Concomitant]
     Indication: HYPERTENSION
  7. PREMPRO [Concomitant]
     Indication: HORMONE REPLACEMENT THERAPY
  8. METHOTREXATE [Concomitant]
     Indication: RHEUMATOID ARTHRITIS
  9. SULFAZINE [Concomitant]
     Indication: RHEUMATOID ARTHRITIS
  10. ADVAIR DISKUS 100/50 [Concomitant]
     Indication: ASTHMA
     Dosage: 250/50 DAILY
  11. ALBUTEROL [Concomitant]
     Indication: ASTHMA
  12. SIMVASTATIN [Concomitant]
     Indication: BLOOD CHOLESTEROL INCREASED
  13. CYMBALTA [Concomitant]
     Indication: FIBROMYALGIA
  14. CYCLOBENZAPRINE [Concomitant]
     Indication: RHEUMATOID ARTHRITIS

REACTIONS (2)
  - FEELING HOT [None]
  - RASH PAPULAR [None]
